FAERS Safety Report 13696669 (Version 1)
Quarter: 2017Q2

REPORT INFORMATION
  Report Type: Spontaneous
  Country: US (occurrence: US)
  Receive Date: 20170628
  Receipt Date: 20170628
  Transmission Date: 20170830
  Serious: Yes (Other)
  Sender: FDA-Public Use
  Company Number: US-WEST-WARD PHARMACEUTICALS CORP.-US-H14001-17-02102

PATIENT
  Sex: Male

DRUGS (6)
  1. PREDNISONE. [Suspect]
     Active Substance: PREDNISONE
     Indication: NASAL CONGESTION
     Route: 065
     Dates: start: 201703, end: 201703
  2. PROMETHAZINE [Suspect]
     Active Substance: PROMETHAZINE\PROMETHAZINE HYDROCHLORIDE
     Indication: COUGH
  3. LEVAQUIN [Suspect]
     Active Substance: LEVOFLOXACIN
     Indication: NASAL CONGESTION
     Route: 065
     Dates: start: 201703, end: 201703
  4. LEVAQUIN [Suspect]
     Active Substance: LEVOFLOXACIN
     Indication: COUGH
  5. PREDNISONE. [Suspect]
     Active Substance: PREDNISONE
     Indication: COUGH
  6. PROMETHAZINE [Suspect]
     Active Substance: PROMETHAZINE\PROMETHAZINE HYDROCHLORIDE
     Indication: NASAL CONGESTION
     Route: 065
     Dates: start: 201703, end: 201703

REACTIONS (3)
  - Chronic obstructive pulmonary disease [Unknown]
  - Sinusitis [Unknown]
  - Respiratory tract infection fungal [Unknown]

NARRATIVE: CASE EVENT DATE: 2017
